FAERS Safety Report 5915827-4 (Version None)
Quarter: 2008Q4

REPORT INFORMATION
  Report Type: 
  Country: None (occurrence: None)
  Receive Date: 20081010
  Receipt Date: 20081002
  Transmission Date: 20090506
  Serious: Yes (Hospitalization)
  Sender: FDA-Public Use
  Company Number: US-GENENTECH-269040

PATIENT
  Sex: Female
  Weight: 128.18 kg

DRUGS (5)
  1. GDC-0449 [Suspect]
     Indication: COLORECTAL CANCER METASTATIC
     Dosage: 150 MG, QD
     Route: 048
     Dates: start: 20080919, end: 20081001
  2. BEVACIZUMAB [Suspect]
     Indication: COLORECTAL CANCER METASTATIC
  3. OXALIPLATIN [Suspect]
     Indication: COLORECTAL CANCER METASTATIC
  4. IRINOTECAN HYDROCHLORIDE [Suspect]
     Indication: COLORECTAL CANCER METASTATIC
  5. FLUOROURACIL [Suspect]
     Indication: COLORECTAL CANCER METASTATIC

REACTIONS (1)
  - CONVULSION [None]
